FAERS Safety Report 7718759-4 (Version None)
Quarter: 2011Q3

REPORT INFORMATION
  Report Type: 
  Country: None (occurrence: None)
  Receive Date: 20110830
  Receipt Date: 20110825
  Transmission Date: 20111222
  Serious: Yes (Other)
  Sender: FDA-Public Use
  Company Number: US-PFIZER INC-2011198966

PATIENT
  Sex: Female
  Weight: 72.562 kg

DRUGS (1)
  1. DETROL LA [Suspect]
     Indication: HYPERTONIC BLADDER
     Dosage: 4 MG, 1X/DAY
     Route: 048
     Dates: start: 20110818, end: 20110825

REACTIONS (5)
  - TREMOR [None]
  - GRIP STRENGTH DECREASED [None]
  - PARAESTHESIA [None]
  - SENSATION OF HEAVINESS [None]
  - MUSCULAR WEAKNESS [None]
